FAERS Safety Report 21706195 (Version 1)
Quarter: 2022Q4

REPORT INFORMATION
  Report Type: Spontaneous
  Country: FR (occurrence: FR)
  Receive Date: 20221209
  Receipt Date: 20221209
  Transmission Date: 20230113
  Serious: Yes (Other)
  Sender: FDA-Public Use
  Company Number: FR-MYLANLABS-2022M1137154

PATIENT
  Age: 52 Year
  Sex: Male

DRUGS (2)
  1. CARBOPLATIN [Suspect]
     Active Substance: CARBOPLATIN
     Indication: Non-small cell lung cancer metastatic
     Dosage: UNK, CYCLE, RECEIVED 3 CYCLES
     Route: 065
     Dates: start: 20151124
  2. PEMETREXED [Suspect]
     Active Substance: PEMETREXED
     Indication: Non-small cell lung cancer metastatic
     Dosage: UNK, CYCLE, RECEIVED 3 CYCLES
     Route: 065
     Dates: start: 20151124

REACTIONS (3)
  - Drug ineffective [Unknown]
  - Disease progression [Unknown]
  - Anaemia [Unknown]
